FAERS Safety Report 15587036 (Version 1)
Quarter: 2018Q4

REPORT INFORMATION
  Report Type: Spontaneous
  Country: US (occurrence: US)
  Receive Date: 20181105
  Receipt Date: 20181105
  Transmission Date: 20190205
  Serious: Yes (Hospitalization)
  Sender: FDA-Public Use
  Company Number: US-HERITAGE PHARMACEUTICALS-2018HTG00416

PATIENT
  Age: 21 Year
  Sex: Male

DRUGS (1)
  1. HYDRALAZINE HYDROCHLORIDE. [Suspect]
     Active Substance: HYDRALAZINE HYDROCHLORIDE
     Dosage: 50 MG, 3X/DAY
     Route: 065

REACTIONS (2)
  - Pericardial effusion [Recovered/Resolved]
  - Lupus-like syndrome [Recovered/Resolved]
